FAERS Safety Report 16388595 (Version 1)
Quarter: 2019Q2

REPORT INFORMATION
  Report Type: Spontaneous
  Country: IL (occurrence: IL)
  Receive Date: 20190604
  Receipt Date: 20190604
  Transmission Date: 20190711
  Serious: Yes (Death, Other)
  Sender: FDA-Public Use
  Company Number: IL-009507513-1906ISR000780

PATIENT
  Age: 72 Year
  Sex: Male

DRUGS (5)
  1. ALIMTA [Suspect]
     Active Substance: PEMETREXED DISODIUM
     Indication: LUNG ADENOCARCINOMA
     Dosage: UNK
  2. CARBOPLATIN. [Suspect]
     Active Substance: CARBOPLATIN
     Indication: LUNG ADENOCARCINOMA
  3. GEMZAR [Suspect]
     Active Substance: GEMCITABINE HYDROCHLORIDE
     Indication: LUNG ADENOCARCINOMA
     Dosage: UNK
  4. KEYTRUDA [Suspect]
     Active Substance: PEMBROLIZUMAB
     Indication: LUNG ADENOCARCINOMA
     Dosage: UNK
  5. XELODA [Suspect]
     Active Substance: CAPECITABINE
     Indication: LUNG ADENOCARCINOMA
     Dosage: UNK

REACTIONS (3)
  - Malignant neoplasm progression [Unknown]
  - Diarrhoea [Fatal]
  - Off label use [Unknown]
